FAERS Safety Report 8334144-9 (Version None)
Quarter: 2012Q2

REPORT INFORMATION
  Report Type: 
  Country: None (occurrence: None)
  Receive Date: 20120503
  Receipt Date: 20110302
  Transmission Date: 20120825
  Serious: Yes (Other)
  Sender: FDA-Public Use
  Company Number: US-TEVA-2011001039

PATIENT

DRUGS (3)
  1. NICOTINE [Suspect]
  2. NUVIGIL [Interacting]
     Route: 048
  3. NUVIGIL [Interacting]
     Route: 048

REACTIONS (3)
  - DRUG EFFECT INCREASED [None]
  - DRUG INTERACTION [None]
  - DRUG PRESCRIBING ERROR [None]
